FAERS Safety Report 9218187 (Version 1)
Quarter: 2013Q2

REPORT INFORMATION
  Report Type: Spontaneous
  Country: NL (occurrence: NL)
  Receive Date: 20130408
  Receipt Date: 20130408
  Transmission Date: 20140414
  Serious: Yes (Other)
  Sender: FDA-Public Use
  Company Number: PHHY2013NL009319

PATIENT
  Age: 40 Year
  Sex: Male

DRUGS (3)
  1. ISONIAZID [Suspect]
     Indication: ANKYLOSING SPONDYLITIS
  2. DICLOFENAC [Suspect]
     Indication: ANKYLOSING SPONDYLITIS
  3. ETANERCEPT [Suspect]
     Indication: ANKYLOSING SPONDYLITIS
     Dosage: 50MG WEEKLY

REACTIONS (2)
  - Hepatic steatosis [Unknown]
  - Alanine aminotransferase increased [Unknown]
